FAERS Safety Report 9870186 (Version 4)
Quarter: 2014Q2

REPORT INFORMATION
  Report Type: Spontaneous
  Country: BR (occurrence: BR)
  Receive Date: 20140205
  Receipt Date: 20140619
  Transmission Date: 20141212
  Serious: Yes (Death, Hospitalization, Other)
  Sender: FDA-Public Use
  Company Number: BR-JNJFOC-20140118568

PATIENT
  Age: 85 Year
  Sex: Male
  Weight: 70 kg

DRUGS (6)
  1. ZYTIGA [Suspect]
     Indication: PROSTATE CANCER
     Route: 048
     Dates: start: 20140123
  2. CLORANA [Concomitant]
     Indication: CARDIAC DISORDER
     Route: 065
     Dates: start: 2009
  3. IODINATED GLYCEROL [Concomitant]
     Indication: CARDIAC DISORDER
     Route: 065
     Dates: start: 2009
  4. ANCORON [Concomitant]
     Indication: DYSKINESIA
     Route: 065
  5. ANCORON [Concomitant]
     Indication: CARDIAC FIBRILLATION
     Route: 065
  6. XARELTO [Concomitant]
     Indication: ANTICOAGULANT THERAPY
     Route: 065
     Dates: start: 20140218

REACTIONS (9)
  - Death [Fatal]
  - Pneumonia [Unknown]
  - Blood pressure decreased [Not Recovered/Not Resolved]
  - Right ventricular failure [Unknown]
  - Atrial fibrillation [Unknown]
  - Pulmonary hypertension [Unknown]
  - Dizziness [Not Recovered/Not Resolved]
  - Tricuspid valve incompetence [Unknown]
  - Weight decreased [Unknown]
